FAERS Safety Report 8571134-5 (Version None)
Quarter: 2012Q3

REPORT INFORMATION
  Report Type: 
  Country: None (occurrence: None)
  Receive Date: 20120806
  Receipt Date: 20120731
  Transmission Date: 20120928
  Serious: No
  Sender: FDA-Public Use
  Company Number: US-PFIZER INC-2012186096

PATIENT
  Age: 57 Year
  Sex: Female

DRUGS (4)
  1. DOXYCYCLINE HYCLATE [Suspect]
     Dosage: UNK
  2. KEFLEX [Suspect]
     Dosage: UNK
  3. VIOXX [Suspect]
     Dosage: UNK
  4. ILOSONE [Suspect]
     Dosage: UNK

REACTIONS (2)
  - URTICARIA [None]
  - DRUG HYPERSENSITIVITY [None]
